FAERS Safety Report 6573295-6 (Version None)
Quarter: 2010Q1

REPORT INFORMATION
  Report Type: 
  Country: None (occurrence: None)
  Receive Date: 20100203
  Receipt Date: 20100203
  Transmission Date: 20100710
  Serious: No
  Sender: FDA-Public Use
  Company Number: None

PATIENT
  Age: 60 Year
  Sex: Male
  Weight: 99.7913 kg

DRUGS (1)
  1. ZICAM OXYMETAZOLINE HCI 0.05% ZICAM [Suspect]
     Indication: NASOPHARYNGITIS
     Dosage: 2 TO 3 TIMES IN EACH NOSTRAL TWICE EVERY 24 HRS
     Dates: start: 20030101, end: 20070201

REACTIONS (1)
  - ANOSMIA [None]
